FAERS Safety Report 13926123 (Version 3)
Quarter: 2017Q4

REPORT INFORMATION
  Report Type: Spontaneous
  Country: GB (occurrence: GB)
  Receive Date: 20170831
  Receipt Date: 20171027
  Transmission Date: 20180320
  Serious: Yes (Death, Other)
  Sender: FDA-Public Use
  Company Number: GB-PFIZER INC-2017371234

PATIENT

DRUGS (2)
  1. TRANEXAMIC ACID. [Suspect]
     Active Substance: TRANEXAMIC ACID
     Indication: GASTROINTESTINAL HAEMORRHAGE
     Dosage: UNK
     Dates: start: 20170617, end: 20170723
  2. TINZAPARIN [Suspect]
     Active Substance: TINZAPARIN
     Indication: DEEP VEIN THROMBOSIS
     Dosage: UNK
     Dates: start: 20170713, end: 20170723

REACTIONS (4)
  - Activated partial thromboplastin time prolonged [Unknown]
  - Deep vein thrombosis [Unknown]
  - Incorrect drug administration duration [Unknown]
  - Gastrointestinal haemorrhage [Fatal]

NARRATIVE: CASE EVENT DATE: 20170713
